FAERS Safety Report 8778361 (Version 2)
Quarter: 2012Q4

REPORT INFORMATION
  Report Type: 
  Country: US (occurrence: US)
  Receive Date: 20120912
  Receipt Date: 20121009
  Transmission Date: 20130627
  Serious: No
  Sender: FDA-Public Use
  Company Number: US-ASTRAZENECA-2012SE61048

PATIENT
  Age: 66 Year
  Sex: Female
  Weight: 68 kg

DRUGS (10)
  1. CRESTOR [Suspect]
     Indication: BLOOD CHOLESTEROL
     Route: 048
     Dates: end: 2012
  2. SIMVASTATIN [Suspect]
     Route: 065
  3. CLONIDINE [Concomitant]
  4. METOPROLOL TARTRATE [Concomitant]
  5. CLOPIDOGREL [Concomitant]
  6. SERTRALINE [Concomitant]
  7. KLOR CON [Concomitant]
  8. ASA [Concomitant]
  9. AMLODIPINE [Concomitant]
  10. HCTZ [Concomitant]

REACTIONS (3)
  - Limb discomfort [Not Recovered/Not Resolved]
  - Blood cholesterol increased [Not Recovered/Not Resolved]
  - Intentional drug misuse [Unknown]
